FAERS Safety Report 24322183 (Version 1)
Quarter: 2024Q3

REPORT INFORMATION
  Report Type: Spontaneous
  Country: US (occurrence: US)
  Receive Date: 20240916
  Receipt Date: 20240916
  Transmission Date: 20241017
  Serious: No
  Sender: SANOFI AVENTIS
  Company Number: US-SA-2024SA265711

PATIENT
  Age: 77 Year
  Sex: Female
  Weight: 80.2 kg

DRUGS (1)
  1. TOUJEO [Suspect]
     Active Substance: INSULIN GLARGINE
     Indication: Diabetes mellitus
     Dosage: 40 U AM, 20 U AT NIGHT
     Route: 058
     Dates: start: 20240606

REACTIONS (1)
  - Inappropriate schedule of product administration [Unknown]
